FAERS Safety Report 5367345-2 (Version None)
Quarter: 2007Q2

REPORT INFORMATION
  Report Type: 
  Country: None (occurrence: None)
  Receive Date: 20070622
  Receipt Date: 20060711
  Transmission Date: 20071010
  Serious: No
  Sender: FDA-Public Use
  Company Number: US-ASTRAZENECA-2006UW09972

PATIENT
  Age: 69 Year
  Sex: Male
  Weight: 94.1 kg

DRUGS (14)
  1. PULMICORT [Suspect]
     Indication: BRONCHITIS CHRONIC
     Route: 055
     Dates: start: 20060516, end: 20060522
  2. PULMICORT [Suspect]
     Indication: CHRONIC OBSTRUCTIVE PULMONARY DISEASE
     Route: 055
     Dates: start: 20060516, end: 20060522
  3. ZOCOR [Concomitant]
  4. TERAZOSIN HCL [Concomitant]
  5. HYTRIN [Concomitant]
  6. IBUPROFEN [Concomitant]
  7. LORAZEPAM [Concomitant]
  8. NITROGLYCERIN [Concomitant]
  9. AVAPRO [Concomitant]
  10. FUROSEMIDE [Concomitant]
  11. COMBIVENT [Concomitant]
     Route: 055
  12. ACETAMINOPHEN [Concomitant]
  13. DUONEB [Concomitant]
  14. KOPENEX [Concomitant]

REACTIONS (1)
  - BLOOD GLUCOSE INCREASED [None]
